FAERS Safety Report 9744415 (Version 1)
Quarter: 2013Q4

REPORT INFORMATION
  Report Type: Spontaneous
  Country: AT (occurrence: AT)
  Receive Date: 20131210
  Receipt Date: 20131210
  Transmission Date: 20140711
  Serious: Yes (Hospitalization)
  Sender: FDA-Public Use
  Company Number: AT-BRISTOL-MYERS SQUIBB COMPANY-19903418

PATIENT
  Sex: Male

DRUGS (2)
  1. ELIQUIS [Suspect]
     Dosage: DOSE REDUCED TO 2.5MG TWICE A DAY
  2. PLAVIX [Suspect]

REACTIONS (2)
  - Cardiac failure [Unknown]
  - Epistaxis [Not Recovered/Not Resolved]
